FAERS Safety Report 9269838 (Version 4)
Quarter: 2013Q3

REPORT INFORMATION
  Report Type: Spontaneous
  Country: US (occurrence: US)
  Receive Date: 20130503
  Receipt Date: 20130905
  Transmission Date: 20140515
  Serious: Yes (Other)
  Sender: FDA-Public Use
  Company Number: US-JNJFOC-20130412308

PATIENT
  Sex: Female

DRUGS (10)
  1. IMODIUM [Suspect]
     Route: 048
  2. IMODIUM [Suspect]
     Indication: DIARRHOEA
     Route: 048
  3. IMODIUM [Suspect]
     Route: 048
  4. IMODIUM [Suspect]
     Indication: DIARRHOEA
     Route: 048
  5. LUMIGAN [Suspect]
     Indication: PRODUCT USED FOR UNKNOWN INDICATION
     Route: 047
     Dates: start: 20121024
  6. EXFORGE [Concomitant]
     Indication: BLOOD PRESSURE
     Route: 065
  7. PROTONIX [Concomitant]
     Indication: HYPERCHLORHYDRIA
     Route: 065
  8. OCUVITE LUTEIN [Concomitant]
     Indication: EYE DISORDER
     Route: 065
  9. EYE DROPS (UNSPECIFIED) [Concomitant]
     Indication: EYE IRRITATION
     Route: 047
  10. ALPHAGAN [Concomitant]
     Route: 047
     Dates: start: 20121024

REACTIONS (3)
  - Glaucoma [Unknown]
  - Vision blurred [Unknown]
  - Corneal transplant [Unknown]
